FAERS Safety Report 20060276 (Version 5)
Quarter: 2023Q2

REPORT INFORMATION
  Report Type: Report from Study
  Country: US (occurrence: US)
  Receive Date: 20211112
  Receipt Date: 20230404
  Transmission Date: 20230721
  Serious: Yes (Other)
  Sender: FDA-Public Use
  Company Number: US-NOVARTISTESTPH-NVSC2021US258717

PATIENT
  Sex: Female

DRUGS (2)
  1. ENTRESTO [Suspect]
     Active Substance: SACUBITRIL\VALSARTAN
     Indication: Product used for unknown indication
     Dosage: UNK
     Route: 065
  2. ENTRESTO [Suspect]
     Active Substance: SACUBITRIL\VALSARTAN
     Dosage: 1 DOSAGE FORM, (180) TAB
     Route: 048

REACTIONS (7)
  - Ill-defined disorder [Unknown]
  - Gingivitis [Unknown]
  - Ear infection [Unknown]
  - Tooth infection [Unknown]
  - Respiratory syncytial virus infection [Unknown]
  - Pharyngitis streptococcal [Unknown]
  - COVID-19 [Unknown]
